FAERS Safety Report 17039602 (Version 1)
Quarter: 2019Q4

REPORT INFORMATION
  Report Type: Spontaneous
  Country: CN (occurrence: CN)
  Receive Date: 20191115
  Receipt Date: 20191115
  Transmission Date: 20200122
  Serious: Yes (Hospitalization)
  Sender: FDA-Public Use
  Company Number: CN-BAXTER-2019BAX022719

PATIENT
  Age: 37 Year
  Sex: Male

DRUGS (6)
  1. CYTARABINE HYDROCHLORIDE [Suspect]
     Active Substance: CYTARABINE HYDROCHLORIDE
     Indication: CHEMOTHERAPY
     Dosage: DOSE REDUCTION?FIRST CYCLE
     Route: 041
     Dates: start: 20191015, end: 20191017
  2. DAUNORUBICIN HYDROCHLORIDE. [Suspect]
     Active Substance: DAUNORUBICIN HYDROCHLORIDE
     Indication: CHEMOTHERAPY
  3. CYTARABINE HYDROCHLORIDE [Suspect]
     Active Substance: CYTARABINE HYDROCHLORIDE
     Indication: ACUTE MONOCYTIC LEUKAEMIA
     Dosage: FIRST CYCLE
     Route: 041
     Dates: start: 20191011, end: 20191015
  4. 0.9% SODIUM CHLORIDE INJECTION [Suspect]
     Active Substance: SODIUM CHLORIDE
     Dosage: SOLVENT FOR DAUNORUBICIN?FIRST CYCLE
     Route: 041
     Dates: start: 20191011, end: 20191013
  5. 0.9% SODIUM CHLORIDE INJECTION [Suspect]
     Active Substance: SODIUM CHLORIDE
     Indication: MEDICATION DILUTION
     Dosage: SOLVENT FOR CYTARABINE 196 MG TILL 15OCT2019 AND SOLVENT FOR CYTARABINE 98MG FROM 15OCT2019 TO 17OCT
     Route: 041
     Dates: start: 20191011, end: 20191017
  6. DAUNORUBICIN HYDROCHLORIDE. [Suspect]
     Active Substance: DAUNORUBICIN HYDROCHLORIDE
     Indication: ACUTE MONOCYTIC LEUKAEMIA
     Dosage: FIRST CYCLE
     Route: 041
     Dates: start: 20191011, end: 20191013

REACTIONS (4)
  - Oropharyngeal pain [Unknown]
  - Pyrexia [Unknown]
  - Blood bilirubin increased [Recovering/Resolving]
  - Jaundice [Recovering/Resolving]

NARRATIVE: CASE EVENT DATE: 201910
